FAERS Safety Report 5010336-1 (Version None)
Quarter: 2006Q2

REPORT INFORMATION
  Report Type: 
  Country: None (occurrence: None)
  Receive Date: 20060404
  Receipt Date: 20060131
  Transmission Date: 20061013
  Serious: Yes (Other)
  Sender: FDA-Public Use
  Company Number: US200602000423

PATIENT
  Age: 36 Year
  Sex: Female

DRUGS (7)
  1. CYMBALTA [Suspect]
  2. ULTRAM (TRAMADOL HYDORCHLORIDE) [Concomitant]
  3. PERCOCET [Concomitant]
  4. ACETAMINOPHEN [Concomitant]
  5. ZANAFLEX [Concomitant]
  6. NAPROXEN [Concomitant]
  7. NEURONTIN [Concomitant]

REACTIONS (2)
  - ALANINE AMINOTRANSFERASE INCREASED [None]
  - BLOOD BILIRUBIN [None]
